FAERS Safety Report 23555617 (Version 1)
Quarter: 2024Q1

REPORT INFORMATION
  Report Type: Spontaneous
  Country: BG (occurrence: BG)
  Receive Date: 20240222
  Receipt Date: 20240222
  Transmission Date: 20240409
  Serious: Yes (Other)
  Sender: FDA-Public Use
  Company Number: BG-BoehringerIngelheim-2024-BI-009040

PATIENT
  Age: 71 Year
  Sex: Male

DRUGS (6)
  1. JARDIANCE [Suspect]
     Active Substance: EMPAGLIFLOZIN
     Indication: Type 2 diabetes mellitus
  2. Cardiket 20 mg. ? 2 ? tab. daily. [Concomitant]
     Indication: Product used for unknown indication
  3. Norvask 5 mg. ? 1/2 tab. lunch [Concomitant]
     Indication: Product used for unknown indication
  4. Avanor 20 mg. ? 1 tab. evening. [Concomitant]
     Indication: Product used for unknown indication
  5. Nebilet 5 mg. 1 tab. in the morning. + 1/2 tab. afternoon. [Concomitant]
     Indication: Product used for unknown indication
     Dosage: 1 TAB. IN THE MORNING. + 1/2 TAB. AFTERNOON
  6. CLOPIDOGREL [Concomitant]
     Active Substance: CLOPIDOGREL BISULFATE
     Indication: Product used for unknown indication

REACTIONS (2)
  - Gastrooesophageal reflux disease [Unknown]
  - Neoplasm malignant [Unknown]
